FAERS Safety Report 6080025-3 (Version None)
Quarter: 2009Q1

REPORT INFORMATION
  Report Type: 
  Country: None (occurrence: None)
  Receive Date: 20090217
  Receipt Date: 20090205
  Transmission Date: 20090719
  Serious: Yes (Hospitalization, Other)
  Sender: FDA-Public Use
  Company Number: BR-AVENTIS-200911310GDDC

PATIENT
  Age: 44 Year
  Sex: Female
  Weight: 53 kg

DRUGS (12)
  1. LANTUS [Suspect]
     Route: 058
  2. LANTUS [Suspect]
     Route: 058
  3. OPTIPEN (INSULIN PUMP) [Suspect]
     Dates: start: 20070101
  4. ISOSORBIDE MONONITRATE [Concomitant]
     Indication: CARDIOVASCULAR DISORDER
     Route: 048
     Dates: start: 20020101
  5. CARVEDILOL [Concomitant]
     Indication: CARDIOVASCULAR DISORDER
     Dosage: DOSE QUANTITY: 2
     Route: 048
     Dates: start: 20020101
  6. FUROSEMIDE [Concomitant]
     Indication: CARDIOVASCULAR DISORDER
     Dosage: DOSE QUANTITY: 1
     Route: 048
     Dates: start: 20020101
  7. ACETYLSALICYLIC ACID SRT [Concomitant]
     Indication: CARDIOVASCULAR DISORDER
     Dosage: DOSE QUANTITY: 1
     Route: 048
     Dates: start: 20020101
  8. ALPRAZOLAM [Concomitant]
     Indication: CARDIOVASCULAR DISORDER
     Dates: start: 20020101
  9. ATACAND [Concomitant]
     Indication: CARDIOVASCULAR DISORDER
     Dates: start: 20020101
  10. CLOPIDOGREL [Concomitant]
     Indication: CARDIOVASCULAR DISORDER
     Dates: start: 20020101
  11. ALDACTONE [Concomitant]
     Dates: start: 20090101
  12. SIMVASTATIN [Concomitant]
     Dates: start: 20020101

REACTIONS (2)
  - HYPOGLYCAEMIA [None]
  - MYOCARDIAL INFARCTION [None]
